APPROVED DRUG PRODUCT: HALOPERIDOL
Active Ingredient: HALOPERIDOL
Strength: 5MG
Dosage Form/Route: TABLET;ORAL
Application: A216918 | Product #004 | TE Code: AB
Applicant: MANKIND PHARMA LTD
Approved: Apr 11, 2024 | RLD: No | RS: No | Type: RX